FAERS Safety Report 23184664 (Version 1)
Quarter: 2023Q4

REPORT INFORMATION
  Report Type: Spontaneous
  Country: CA (occurrence: CA)
  Receive Date: 20231115
  Receipt Date: 20231115
  Transmission Date: 20240110
  Serious: Yes (Other)
  Sender: FDA-Public Use
  Company Number: CA-CELLTRION INC.-2023CA021995

PATIENT

DRUGS (6)
  1. INFLECTRA [Suspect]
     Active Substance: INFLIXIMAB-DYYB
     Indication: Crohn^s disease
     Dosage: 1 DF, 7.5MG/KG Q 0, 2, 6 WEEKS, EVERY 8 WEEKS
     Route: 041
     Dates: start: 20201008, end: 20201111
  2. INFLECTRA [Suspect]
     Active Substance: INFLIXIMAB-DYYB
     Dosage: 1 DF, 7.5 MG/KG EVERY 4 WEEKS
     Route: 041
     Dates: start: 20201218, end: 20220210
  3. INFLECTRA [Suspect]
     Active Substance: INFLIXIMAB-DYYB
     Dosage: 10 MG EVERY 6 WEEKS (600 MG)
     Route: 042
     Dates: start: 20220324, end: 20220729
  4. INFLECTRA [Suspect]
     Active Substance: INFLIXIMAB-DYYB
     Dosage: 600 MG EVERY 7 WEEKS
     Route: 042
     Dates: start: 20220922
  5. INFLECTRA [Suspect]
     Active Substance: INFLIXIMAB-DYYB
     Dosage: 600 MG EVERY 7 WEEKS
     Route: 042
     Dates: start: 20230914
  6. IRON [Concomitant]
     Active Substance: IRON
     Dosage: 1 DF, DOSAGE INFORMATION NOT AVAILABLE

REACTIONS (4)
  - Tooth impacted [Recovered/Resolved]
  - Condition aggravated [Unknown]
  - Off label use [Unknown]
  - Product use issue [Unknown]

NARRATIVE: CASE EVENT DATE: 20230101
